FAERS Safety Report 9330845 (Version 2)
Quarter: 2013Q3

REPORT INFORMATION
  Report Type: Spontaneous
  Country: US (occurrence: US)
  Receive Date: 20130605
  Receipt Date: 20130802
  Transmission Date: 20140515
  Serious: Yes (Hospitalization)
  Sender: FDA-Public Use
  Company Number: US-BAYER-2013-068148

PATIENT
  Age: 30 Year
  Sex: Female

DRUGS (14)
  1. YASMIN [Suspect]
     Indication: MENSTRUAL CYCLE MANAGEMENT
     Dosage: UNK
     Dates: start: 200808
  2. YAZ [Suspect]
  3. NAPROXEN [Concomitant]
  4. PREVACID [Concomitant]
     Dosage: UNK
     Dates: start: 20081010
  5. METRONIDAZOLE [Concomitant]
     Dosage: 0.75%
  6. METRONIDAZOLE [Concomitant]
  7. CIPROFLOXACIN HCL [Concomitant]
  8. HYDROXYCHLOROQUINE [Concomitant]
  9. CLINDESSE [Concomitant]
  10. METHYLPREDNISOLONE [Concomitant]
  11. METHYLPREDNISOLONE [Concomitant]
  12. BENZACLIN [Concomitant]
  13. RETIN A [Concomitant]
  14. NAPROSYN [Concomitant]
     Dosage: UNK
     Dates: start: 20081010

REACTIONS (8)
  - Deep vein thrombosis [None]
  - Pulmonary embolism [None]
  - Injury [None]
  - Pain [None]
  - General physical health deterioration [None]
  - Anxiety [None]
  - Emotional distress [None]
  - Pain [None]
